FAERS Safety Report 5389985-7 (Version None)
Quarter: 2007Q3

REPORT INFORMATION
  Report Type: 
  Country: None (occurrence: None)
  Receive Date: 20070718
  Receipt Date: 20070710
  Transmission Date: 20080115
  Serious: Yes (Hospitalization)
  Sender: FDA-Public Use
  Company Number: IT-BAYER-200713932GDS

PATIENT
  Age: 76 Year
  Sex: Female

DRUGS (1)
  1. CARDIOASPIRIN 100 [Suspect]
     Indication: LEUKOENCEPHALOPATHY
     Dosage: TOTAL DAILY DOSE: 100 MG  UNIT DOSE: 100 MG
     Route: 048
     Dates: start: 20040401, end: 20050415

REACTIONS (2)
  - ABDOMINAL PAIN UPPER [None]
  - FEEDING DISORDER [None]
